FAERS Safety Report 8113233-8 (Version None)
Quarter: 2012Q1

REPORT INFORMATION
  Report Type: 
  Country: None (occurrence: None)
  Receive Date: 20120203
  Receipt Date: 20120129
  Transmission Date: 20120608
  Serious: Yes (Other)
  Sender: FDA-Public Use
  Company Number: AT-PFIZER INC-2012023950

PATIENT
  Age: 34 Year
  Sex: Male

DRUGS (37)
  1. EFFEXOR XR [Suspect]
     Dosage: 150 MG, UNK
     Dates: start: 20110927
  2. LORAZEPAM [Suspect]
     Dosage: 8.75 MG, UNK
     Dates: start: 20110909, end: 20110911
  3. LORAZEPAM [Suspect]
     Dosage: 1.25 MG, UNK
     Dates: start: 20110919, end: 20110919
  4. BRITLOFEX [Concomitant]
     Dosage: 8 DF, UNK
     Dates: start: 20110915, end: 20110916
  5. EFFEXOR XR [Suspect]
     Dosage: 75 MG, UNK
     Dates: start: 20110906, end: 20110926
  6. LORAZEPAM [Suspect]
     Dosage: 10 MG, UNK
     Dates: start: 20110907, end: 20110908
  7. LORAZEPAM [Suspect]
     Dosage: 5 MG, UNK
     Dates: start: 20110915, end: 20110915
  8. SEROQUEL [Suspect]
     Dosage: 200 MG, UNK
     Dates: start: 20110904, end: 20110904
  9. SEROQUEL [Suspect]
     Dosage: 150 MG, UNK
     Dates: start: 20110905, end: 20110912
  10. SEROQUEL [Suspect]
     Dosage: 250 MG, UNK
     Dates: start: 20110913, end: 20110913
  11. LORAZEPAM [Suspect]
     Dosage: 15 MG, UNK
     Dates: start: 20110904, end: 20110904
  12. AMPHOTERICIN B [Concomitant]
     Dosage: 4 DF, UNK
     Dates: start: 20110909, end: 20110921
  13. BRITLOFEX [Concomitant]
     Dosage: 7 DF, UNK
     Dates: start: 20110914, end: 20110914
  14. LORAZEPAM [Suspect]
     Dosage: 8.25 MG, UNK
     Dates: start: 20110912, end: 20110912
  15. LORAZEPAM [Suspect]
     Dosage: 3.75 MG, UNK
     Dates: start: 20110916, end: 20110916
  16. TRILEPTAL [Suspect]
     Dosage: 1500 MG, UNK
     Dates: start: 20110922, end: 20110922
  17. BRITLOFEX [Concomitant]
     Dosage: 3 DF, UNK
     Dates: start: 20110904, end: 20110908
  18. BRITLOFEX [Concomitant]
     Dosage: 9 DF, UNK
     Dates: start: 20110917, end: 20110920
  19. BRITLOFEX [Concomitant]
     Dosage: 6 DF, UNK
     Dates: start: 20110921, end: 20110921
  20. BRITLOFEX [Concomitant]
     Dosage: 4 DF, UNK
     Dates: start: 20110922, end: 20110922
  21. TRILEPTAL [Suspect]
     Dosage: 900 MG, UNK
     Dates: start: 20110903, end: 20110905
  22. METHADONE [Concomitant]
     Dosage: 70 MG, UNK
     Dates: start: 20110903
  23. LORAZEPAM [Suspect]
     Dosage: 12.5 MG, UNK
     Dates: start: 20110903, end: 20110903
  24. LORAZEPAM [Suspect]
     Dosage: 2.5 MG, UNK
     Dates: start: 20110917, end: 20110918
  25. SEROQUEL [Suspect]
     Dosage: 600 MG, UNK
     Dates: start: 20110914
  26. LORAZEPAM [Suspect]
     Dosage: 12.5 MG, UNK
     Dates: start: 20110906, end: 20110906
  27. TRILEPTAL [Suspect]
     Dosage: 1800 MG, UNK
     Dates: start: 20110923, end: 20110926
  28. SEROQUEL [Suspect]
     Dosage: 75 MG, UNK
     Dates: start: 20110903, end: 20110903
  29. NEXIUM [Concomitant]
     Dosage: 40 MG, UNK
     Dates: start: 20110903
  30. BRITLOFEX [Concomitant]
     Dosage: 4 DF, UNK
     Dates: start: 20110909, end: 20110912
  31. BRITLOFEX [Concomitant]
     Dosage: 2 DF, UNK
     Dates: start: 20110923, end: 20110923
  32. LORAZEPAM [Suspect]
     Dosage: 11.25 MG, UNK
     Dates: start: 20110905, end: 20110905
  33. LORAZEPAM [Suspect]
     Dosage: 6.25 MG, UNK
     Dates: start: 20110913, end: 20110914
  34. TRILEPTAL [Suspect]
     Dosage: 1200 MG, UNK
     Dates: start: 20110906, end: 20110921
  35. MAGNOSOLV [Concomitant]
     Dosage: 1 DF, UNK
     Dates: start: 20110917, end: 20110924
  36. BRITLOFEX [Concomitant]
     Dosage: 4 DF, UNK
     Dates: start: 20110903, end: 20110903
  37. BRITLOFEX [Concomitant]
     Dosage: 6 DF, UNK
     Dates: start: 20110913, end: 20110913

REACTIONS (2)
  - CONVULSION [None]
  - DRUG INTERACTION [None]
